FAERS Safety Report 14842667 (Version 1)
Quarter: 2018Q2

REPORT INFORMATION
  Report Type: Spontaneous
  Country: US (occurrence: US)
  Receive Date: 20180503
  Receipt Date: 20180503
  Transmission Date: 20180711
  Serious: No
  Sender: FDA-Public Use
  Company Number: US-GLAXOSMITHKLINE-GB2018074648

PATIENT
  Age: 57 Year
  Sex: Female

DRUGS (3)
  1. BREO ELLIPTA [Concomitant]
     Active Substance: FLUTICASONE FUROATE\VILANTEROL TRIFENATATE
     Dosage: UNK
  2. INCRUSE ELLIPTA [Concomitant]
     Active Substance: UMECLIDINIUM BROMIDE
  3. NUCALA [Suspect]
     Active Substance: MEPOLIZUMAB
     Indication: ASTHMA
     Dosage: 100 MG, CYC
     Route: 058

REACTIONS (2)
  - Herpes zoster [Recovering/Resolving]
  - Scab [Recovering/Resolving]

NARRATIVE: CASE EVENT DATE: 201804
